FAERS Safety Report 25488073 (Version 2)
Quarter: 2025Q3

REPORT INFORMATION
  Report Type: Report from Study
  Country: US (occurrence: US)
  Receive Date: 20250627
  Receipt Date: 20250728
  Transmission Date: 20251020
  Serious: No
  Sender: SUNOVION
  Company Number: US-SUMITOMO PHARMA SWITZERLAND GMBH-2025SPA007056

PATIENT

DRUGS (2)
  1. ORGOVYX [Suspect]
     Active Substance: RELUGOLIX
     Indication: Prostate cancer
     Route: 048
  2. ORGOVYX [Suspect]
     Active Substance: RELUGOLIX
     Route: 048
     Dates: start: 20250604

REACTIONS (12)
  - Urinary incontinence [Unknown]
  - Cognitive disorder [Unknown]
  - Cough [Recovered/Resolved]
  - Pain [Unknown]
  - Decreased activity [Unknown]
  - Affective disorder [Unknown]
  - Night sweats [Unknown]
  - Arthritis [Unknown]
  - Headache [Unknown]
  - Pain in extremity [Unknown]
  - Back pain [Unknown]
  - Asthenia [Unknown]
